FAERS Safety Report 8544738-3 (Version None)
Quarter: 2012Q3

REPORT INFORMATION
  Report Type: 
  Country: None (occurrence: None)
  Receive Date: 20120727
  Receipt Date: 20120724
  Transmission Date: 20120928
  Serious: Yes (Death, Other)
  Sender: FDA-Public Use
  Company Number: CA-ROCHE-1073862

PATIENT
  Sex: Male
  Weight: 89.438 kg

DRUGS (5)
  1. TEMODAR [Concomitant]
  2. PROCHLORPERAZINE [Concomitant]
  3. RANITIDINE [Concomitant]
  4. AVASTIN [Suspect]
     Indication: GLIOBLASTOMA
     Route: 042
     Dates: start: 20120327, end: 20120704
  5. DEXAMETHASONE [Concomitant]

REACTIONS (2)
  - DEATH [None]
  - THROMBOSIS [None]
